FAERS Safety Report 23780333 (Version 1)
Quarter: 2024Q2

REPORT INFORMATION
  Report Type: Report from Study
  Country: US (occurrence: US)
  Receive Date: 20240424
  Receipt Date: 20240424
  Transmission Date: 20240716
  Serious: Yes (Hospitalization, Other)
  Sender: FDA-Public Use
  Company Number: US-ABBVIE-5730918

PATIENT
  Sex: Male

DRUGS (1)
  1. RINVOQ [Suspect]
     Active Substance: UPADACITINIB
     Indication: Crohn^s disease
     Dosage: LAST ADMIN DATE:2024
     Route: 048
     Dates: start: 20240223

REACTIONS (4)
  - Fall [Unknown]
  - Loss of consciousness [Unknown]
  - Malaise [Unknown]
  - Head injury [Unknown]

NARRATIVE: CASE EVENT DATE: 20240101
